FAERS Safety Report 8718524 (Version 3)
Quarter: 2013Q4

REPORT INFORMATION
  Report Type: Spontaneous
  Country: US (occurrence: US)
  Receive Date: 20120810
  Receipt Date: 20131101
  Transmission Date: 20140711
  Serious: No
  Sender: FDA-Public Use
  Company Number: US-009507513-1208USA001442

PATIENT
  Age: 28 Year
  Sex: Female
  Weight: 63.49 kg

DRUGS (5)
  1. SINGULAIR [Suspect]
     Indication: RHINITIS
     Route: 048
     Dates: start: 20120601, end: 201207
  2. SINGULAIR [Suspect]
     Indication: DYSPNOEA
  3. ZYRTEC [Concomitant]
     Indication: RHINITIS ALLERGIC
     Dosage: UNK
     Route: 048
  4. NASONEX [Concomitant]
     Dosage: 2 DF, PRN
     Route: 045
  5. PROAIR (ALBUTEROL SULFATE) [Suspect]
     Indication: DYSPNOEA
     Dosage: 2 PUFFS, PRN

REACTIONS (4)
  - Nightmare [Recovered/Resolved]
  - Mood altered [Recovered/Resolved]
  - Depressed mood [Recovered/Resolved]
  - Drug ineffective [Unknown]
